FAERS Safety Report 9552153 (Version 1)
Quarter: 2013Q3

REPORT INFORMATION
  Report Type: Spontaneous
  Country: US (occurrence: None)
  Receive Date: 20130724
  Receipt Date: 20130724
  Transmission Date: 20140515
  Serious: Yes (Other)
  Sender: FDA-Public Use
  Company Number: PHEH2012US014456

PATIENT
  Sex: Female

DRUGS (1)
  1. GLEEVEC [Suspect]
     Indication: GASTROINTESTINAL STROMAL TUMOUR
     Dosage: 600 MG, QD, ORAL
     Route: 048

REACTIONS (7)
  - Neoplasm progression [None]
  - Red blood cell abnormality [None]
  - Fatigue [None]
  - Platelet count decreased [None]
  - Raynaud^s phenomenon [None]
  - Malignant neoplasm progression [None]
  - Skin discolouration [None]
